FAERS Safety Report 7826763-0 (Version None)
Quarter: 2011Q4

REPORT INFORMATION
  Report Type: 
  Country: None (occurrence: None)
  Receive Date: 20111020
  Receipt Date: 20111006
  Transmission Date: 20120403
  Serious: Yes (Other)
  Sender: FDA-Public Use
  Company Number: DE-MYLANLABS-2011S1020845

PATIENT
  Age: 14 Year
  Sex: Male
  Weight: 58.5 kg

DRUGS (1)
  1. AZITHROMYCIN [Suspect]
     Indication: BRONCHITIS
     Dosage: 1 X 1
     Route: 048
     Dates: start: 20110418, end: 20110418

REACTIONS (6)
  - CHEST PAIN [None]
  - NAUSEA [None]
  - TRANSAMINASES INCREASED [None]
  - DYSPNOEA [None]
  - VOMITING [None]
  - GASTROINTESTINAL PAIN [None]
